FAERS Safety Report 8470217-8 (Version None)
Quarter: 2012Q2

REPORT INFORMATION
  Report Type: 
  Country: None (occurrence: None)
  Receive Date: 20120627
  Receipt Date: 20120620
  Transmission Date: 20120825
  Serious: Yes (Other)
  Sender: FDA-Public Use
  Company Number: GB-BAYER-2012-061216

PATIENT
  Sex: Female

DRUGS (1)
  1. MIRENA [Suspect]

REACTIONS (7)
  - LOSS OF LIBIDO [None]
  - DIZZINESS [None]
  - NIGHT SWEATS [None]
  - DEPRESSION SUICIDAL [None]
  - WEIGHT INCREASED [None]
  - ACNE CYSTIC [None]
  - MOOD SWINGS [None]
